FAERS Safety Report 4698760-8 (Version None)
Quarter: 2005Q2

REPORT INFORMATION
  Report Type: 
  Country: None (occurrence: None)
  Receive Date: 20050621
  Receipt Date: 20050621
  Transmission Date: 20051028
  Serious: Yes (Hospitalization)
  Sender: FDA-Public Use
  Company Number: 2005P1000033

PATIENT
  Age: 64 Year
  Sex: Male

DRUGS (1)
  1. NICARDIPINE HCL [Suspect]
     Indication: HYPERTENSION
     Dosage: IV
     Route: 042
     Dates: start: 20040306

REACTIONS (2)
  - CEREBRAL INFARCTION [None]
  - TONIC CONVULSION [None]
